FAERS Safety Report 16190195 (Version 1)
Quarter: 2019Q2

REPORT INFORMATION
  Report Type: Spontaneous
  Country: US (occurrence: US)
  Receive Date: 20190308
  Receipt Date: 20190308
  Transmission Date: 20190711
  Serious: Yes (Death)
  Sender: FDA-Public Use
  Company Number: None

PATIENT
  Age: 60 Year
  Sex: Female

DRUGS (1)
  1. STIVARGA [Suspect]
     Active Substance: REGORAFENIB
     Indication: COLON CANCER
     Dosage: ?          OTHER FREQUENCY:DAILY FOR 21,OFF7;?
     Route: 048
     Dates: start: 20180815, end: 20181128

REACTIONS (1)
  - Disease progression [None]

NARRATIVE: CASE EVENT DATE: 20190222
